FAERS Safety Report 8256807-6 (Version None)
Quarter: 2012Q2

REPORT INFORMATION
  Report Type: 
  Country: None (occurrence: None)
  Receive Date: 20120403
  Receipt Date: 20120328
  Transmission Date: 20120825
  Serious: Yes (Death)
  Sender: FDA-Public Use
  Company Number: PHHY2012HU017778

PATIENT
  Age: 47 Year
  Sex: Male

DRUGS (7)
  1. ZOMETA [Suspect]
  2. ZOMETA [Suspect]
     Dates: start: 20091226
  3. ZOMETA [Suspect]
  4. ZOMETA [Suspect]
     Dates: start: 20090727
  5. CHEMOTHERAPEUTICS [Concomitant]
  6. ZOMETA [Suspect]
     Dates: start: 20091030
  7. ZOMETA [Suspect]

REACTIONS (2)
  - NEOPLASM PROGRESSION [None]
  - NEOPLASM MALIGNANT [None]
